FAERS Safety Report 6177434-0 (Version None)
Quarter: 2009Q2

REPORT INFORMATION
  Report Type: 
  Country: None (occurrence: None)
  Receive Date: 20090501
  Receipt Date: 20090501
  Transmission Date: 20091009
  Serious: Yes (Hospitalization)
  Sender: FDA-Public Use
  Company Number: None

PATIENT
  Age: 71 Year
  Sex: Male
  Weight: 68 kg

DRUGS (8)
  1. BEXAROTENE [Suspect]
     Indication: ACUTE MYELOID LEUKAEMIA
     Dosage: 225 MG PO WITH LUNCH / 300MG DINNER
     Route: 048
     Dates: start: 20090123, end: 20090130
  2. BEXAROTENE [Suspect]
     Indication: LEUKAEMIA RECURRENT
     Dosage: 225 MG PO WITH LUNCH / 300MG DINNER
     Route: 048
     Dates: start: 20090123, end: 20090130
  3. AMIODARONE [Concomitant]
  4. FINASTERIDE [Concomitant]
  5. PRILOSEC [Concomitant]
  6. TESSALON [Concomitant]
  7. TRICOR [Concomitant]
  8. LEVOFLOX [Concomitant]

REACTIONS (4)
  - ASTHENIA [None]
  - DIARRHOEA [None]
  - NAUSEA [None]
  - VOMITING [None]
